FAERS Safety Report 8927017 (Version 1)
Quarter: 2012Q4

REPORT INFORMATION
  Report Type: 
  Country: US (occurrence: US)
  Receive Date: 20121127
  Receipt Date: 20121127
  Transmission Date: 20130627
  Serious: No
  Sender: FDA-Public Use
  Company Number: US-BAYER-2012-123602

PATIENT
  Age: 76 Year
  Sex: Female
  Weight: 86.17 kg

DRUGS (8)
  1. ALEVE CAPLET/TABLET,MIDOL EXTENDED RELIEF CAPLET [Suspect]
     Indication: BACK ACHE
     Dosage: 2 DF, QD
     Route: 048
     Dates: start: 2010
  2. LISINOPRIL [Concomitant]
  3. POTASSIUM [Concomitant]
  4. ZINC [Concomitant]
  5. CORVITOL [Concomitant]
  6. CALCIUM [Concomitant]
  7. MAGNESIUM [Concomitant]
  8. GINKO BILOBA [Concomitant]

REACTIONS (1)
  - Incorrect drug administration duration [None]
